FAERS Safety Report 5274950-0 (Version None)
Quarter: 2007Q1

REPORT INFORMATION
  Report Type: 
  Country: None (occurrence: None)
  Receive Date: 20061207
  Receipt Date: 20061002
  Transmission Date: 20070707
  Serious: No
  Sender: FDA-Public Use
  Company Number: 36652

PATIENT
  Age: 87 Year
  Sex: Male
  Weight: 81.6475 kg

DRUGS (6)
  1. NEVANAC [Suspect]
     Indication: PROPHYLAXIS
     Dosage: 3 GTT QD OPHT
     Route: 047
     Dates: start: 20060621, end: 20060801
  2. VEXOL [Suspect]
     Indication: PROPHYLAXIS
     Dosage: 4 GTT QD OPHT
     Route: 047
     Dates: start: 20060621, end: 20060801
  3. ZYMAR [Concomitant]
  4. SYNTHROID [Concomitant]
  5. AMIODARONE HCL [Concomitant]
  6. METOPROLOL SUCCINATE [Concomitant]

REACTIONS (2)
  - ERYTHEMA [None]
  - WEIGHT DECREASED [None]
